FAERS Safety Report 13734080 (Version 1)
Quarter: 2017Q3

REPORT INFORMATION
  Report Type: Spontaneous
  Country: US (occurrence: US)
  Receive Date: 20170708
  Receipt Date: 20170708
  Transmission Date: 20171127
  Serious: No
  Sender: FDA-Public Use
  Company Number: US-009507513-1707USA000358

PATIENT
  Sex: Female
  Weight: 63.5 kg

DRUGS (9)
  1. MAGNESIUM (UNSPECIFIED) [Concomitant]
     Active Substance: MAGNESIUM
     Indication: MINERAL SUPPLEMENTATION
     Dosage: 400 MG, ONCE A DAY (FROM 12-15 YEARS)
     Route: 048
     Dates: start: 2002
  2. PRINIVIL [Concomitant]
     Active Substance: LISINOPRIL
     Indication: HYPERTENSION
     Dosage: 10 MG, QD, (HAS BEEN ON PROBABLY FOR 10 YEARS)
     Route: 048
     Dates: start: 2007
  3. KLOR-CON [Concomitant]
     Active Substance: POTASSIUM CHLORIDE
     Indication: BLOOD POTASSIUM ABNORMAL
     Dosage: 10 MEQ, ONCE A DAY FROM 12 TO 15 YEARS)
     Dates: start: 2002
  4. ZETIA [Suspect]
     Active Substance: EZETIMIBE
     Indication: BLOOD CHOLESTEROL INCREASED
     Dosage: UNK
  5. HYDROCHLORTHIAZID [Concomitant]
     Active Substance: HYDROCHLOROTHIAZIDE
     Dosage: 25MG, HALF OF A TABLET ONCE A DAY
     Route: 048
     Dates: start: 2015
  6. LEVOTHYROXINE SODIUM. [Concomitant]
     Active Substance: LEVOTHYROXINE SODIUM
     Indication: THYROID DISORDER
     Dosage: 200 MICROGRAM, QD, (SINCE SHE WAS 50 YEARS)
     Route: 048
     Dates: start: 1998
  7. CALCIUM D3 [Concomitant]
     Active Substance: CALCIUM\CHOLECALCIFEROL
     Indication: MINERAL SUPPLEMENTATION
     Dosage: 600 MG, ONCE A DAY (FROM 12-15 YEARS)
     Route: 048
     Dates: start: 2002
  8. HYDROCHLORTHIAZID [Concomitant]
     Active Substance: HYDROCHLOROTHIAZIDE
     Indication: HYPERTENSION
     Dosage: 25 MG, 1 TABLET, QD
     Route: 048
     Dates: start: 2005, end: 2015
  9. LEVOTHYROXINE SODIUM. [Concomitant]
     Active Substance: LEVOTHYROXINE SODIUM
     Dosage: 150 MICROGRAM, QD, CHANGED ABOUT A MONTH AGO
     Route: 048

REACTIONS (1)
  - Diarrhoea [Unknown]
